FAERS Safety Report 8401569-2 (Version None)
Quarter: 2012Q2

REPORT INFORMATION
  Report Type: 
  Country: None (occurrence: None)
  Receive Date: 20120601
  Receipt Date: 20120528
  Transmission Date: 20120825
  Serious: Yes (Hospitalization)
  Sender: FDA-Public Use
  Company Number: PHHY2012KR045506

PATIENT
  Age: 60 Year
  Sex: Male

DRUGS (3)
  1. DOXIFLURIDINE [Suspect]
     Indication: COLON CANCER STAGE II
  2. FLUOROURACIL [Suspect]
     Indication: COLON CANCER STAGE III
     Dosage: 425 MG/M2, UNK
  3. LEUCOVORIN CALCIUM [Concomitant]
     Indication: COLON CANCER STAGE III
     Dosage: 20 MG/M2, UNK

REACTIONS (6)
  - THROMBOCYTOPENIA [None]
  - ANAEMIA [None]
  - ASTHENIA [None]
  - FATIGUE [None]
  - DYSPNOEA EXERTIONAL [None]
  - ACUTE MYELOID LEUKAEMIA [None]
